FAERS Safety Report 13298211 (Version 1)
Quarter: 2017Q1

REPORT INFORMATION
  Report Type: Report from Study
  Country: US (occurrence: US)
  Receive Date: 20170306
  Receipt Date: 20170306
  Transmission Date: 20170428
  Serious: Yes (Other)
  Sender: FDA-Public Use
  Company Number: US-SA-2016SA169784

PATIENT
  Age: 40 Year
  Sex: Female

DRUGS (1)
  1. LEMTRADA [Suspect]
     Active Substance: ALEMTUZUMAB
     Indication: MULTIPLE SCLEROSIS
     Route: 041
     Dates: start: 20160216, end: 20160222

REACTIONS (9)
  - Seizure [Unknown]
  - Respiration abnormal [Not Recovered/Not Resolved]
  - Ill-defined disorder [Recovered/Resolved]
  - Bronchitis [Recovered/Resolved]
  - Stress [Unknown]
  - Malaise [Unknown]
  - Fatigue [Unknown]
  - Depressed mood [Unknown]
  - Haemoptysis [Unknown]

NARRATIVE: CASE EVENT DATE: 201602
